FAERS Safety Report 12993687 (Version 3)
Quarter: 2019Q2

REPORT INFORMATION
  Report Type: Spontaneous
  Country: US (occurrence: US)
  Receive Date: 20161202
  Receipt Date: 20190614
  Transmission Date: 20190711
  Serious: No
  Sender: FDA-Public Use
  Company Number: US-JNJFOC-20161123174

PATIENT
  Sex: Male

DRUGS (21)
  1. RISPERDAL [Suspect]
     Active Substance: RISPERIDONE
     Indication: SCHIZOPHRENIA
     Route: 048
  2. RISPERIDONE. [Suspect]
     Active Substance: RISPERIDONE
     Indication: PRODUCT USED FOR UNKNOWN INDICATION
     Route: 048
  3. RISPERDAL [Suspect]
     Active Substance: RISPERIDONE
     Indication: SEIZURE
     Route: 048
  4. RISPERDAL [Suspect]
     Active Substance: RISPERIDONE
     Indication: SEIZURE
     Route: 048
     Dates: start: 20100130
  5. RISPERDAL [Suspect]
     Active Substance: RISPERIDONE
     Indication: SEIZURE
     Route: 048
     Dates: start: 20090403, end: 20090707
  6. RISPERDAL [Suspect]
     Active Substance: RISPERIDONE
     Indication: SCHIZOPHRENIA
     Route: 048
     Dates: start: 20090320, end: 20090423
  7. RISPERDAL [Suspect]
     Active Substance: RISPERIDONE
     Indication: SCHIZOPHRENIA
     Route: 048
     Dates: start: 20100130
  8. RISPERDAL [Suspect]
     Active Substance: RISPERIDONE
     Indication: SCHIZOPHRENIA
     Route: 048
     Dates: start: 20091002, end: 20091019
  9. RISPERDAL [Suspect]
     Active Substance: RISPERIDONE
     Indication: SCHIZOPHRENIA
     Route: 048
     Dates: start: 20110129, end: 2011
  10. RISPERDAL [Suspect]
     Active Substance: RISPERIDONE
     Indication: SEIZURE
     Dosage: 0.5MG AND 1MG
     Route: 048
     Dates: start: 20090306, end: 20090318
  11. RISPERDAL [Suspect]
     Active Substance: RISPERIDONE
     Indication: SEIZURE
     Route: 048
     Dates: start: 20100429, end: 20101022
  12. RISPERDAL [Suspect]
     Active Substance: RISPERIDONE
     Indication: SEIZURE
     Route: 048
     Dates: start: 20090320, end: 20090423
  13. RISPERDAL [Suspect]
     Active Substance: RISPERIDONE
     Indication: SEIZURE
     Route: 048
     Dates: start: 20100212
  14. RISPERDAL [Suspect]
     Active Substance: RISPERIDONE
     Indication: SEIZURE
     Route: 048
     Dates: start: 20090731
  15. RISPERDAL [Suspect]
     Active Substance: RISPERIDONE
     Indication: SEIZURE
     Route: 048
     Dates: start: 20110129, end: 2011
  16. RISPERDAL [Suspect]
     Active Substance: RISPERIDONE
     Indication: SCHIZOPHRENIA
     Route: 048
     Dates: start: 20090403, end: 20090707
  17. RISPERDAL [Suspect]
     Active Substance: RISPERIDONE
     Indication: SCHIZOPHRENIA
     Route: 048
     Dates: start: 20090731
  18. RISPERDAL [Suspect]
     Active Substance: RISPERIDONE
     Indication: SCHIZOPHRENIA
     Dosage: 0.5MG AND 1MG
     Route: 048
     Dates: start: 20090306, end: 20090318
  19. RISPERDAL [Suspect]
     Active Substance: RISPERIDONE
     Indication: SCHIZOPHRENIA
     Route: 048
     Dates: start: 20100212
  20. RISPERDAL [Suspect]
     Active Substance: RISPERIDONE
     Indication: SEIZURE
     Route: 048
     Dates: start: 20091002, end: 20091019
  21. RISPERDAL [Suspect]
     Active Substance: RISPERIDONE
     Indication: SCHIZOPHRENIA
     Route: 048
     Dates: start: 20100429, end: 20101022

REACTIONS (1)
  - Gynaecomastia [Unknown]

NARRATIVE: CASE EVENT DATE: 2014
